FAERS Safety Report 13382022 (Version 2)
Quarter: 2017Q1

REPORT INFORMATION
  Report Type: Spontaneous
  Country: CN (occurrence: CN)
  Receive Date: 20170329
  Receipt Date: 20170330
  Transmission Date: 20170429
  Serious: Yes (Hospitalization)
  Sender: FDA-Public Use
  Company Number: PHHY2017CN042996

PATIENT
  Age: 56 Year
  Sex: Male

DRUGS (10)
  1. DIGOXIN. [Suspect]
     Active Substance: DIGOXIN
     Indication: PRODUCT USED FOR UNKNOWN INDICATION
     Dosage: UNK
     Route: 065
     Dates: start: 20160205
  2. VALSARTAN. [Suspect]
     Active Substance: VALSARTAN
     Dosage: 320 MG, QD (80 MG WAS ADDED GRADUALLY)
     Route: 065
  3. SPIRONOLACTONE. [Suspect]
     Active Substance: SPIRONOLACTONE
     Indication: PRODUCT USED FOR UNKNOWN INDICATION
     Dosage: UNK
     Route: 065
     Dates: start: 20160205
  4. METOPROLOL. [Suspect]
     Active Substance: METOPROLOL
     Indication: PRODUCT USED FOR UNKNOWN INDICATION
     Dosage: 47.5 MG, QD
     Route: 065
     Dates: start: 20160205
  5. ASPIRIN. [Suspect]
     Active Substance: ASPIRIN
     Indication: PRODUCT USED FOR UNKNOWN INDICATION
     Dosage: UNK
     Route: 065
     Dates: start: 20160205
  6. METOPROLOL. [Suspect]
     Active Substance: METOPROLOL
     Dosage: 190 MG, QD (23.75 MG WAS ADDED GRADUALLY)
     Route: 065
  7. ATORVASTATIN [Concomitant]
     Active Substance: ATORVASTATIN
     Indication: PRODUCT USED FOR UNKNOWN INDICATION
     Dosage: UNK
     Route: 065
  8. HYDROCHLOROTHIAZIDE. [Suspect]
     Active Substance: HYDROCHLOROTHIAZIDE
     Indication: PRODUCT USED FOR UNKNOWN INDICATION
     Dosage: UNK
     Route: 065
     Dates: start: 20160205
  9. VALSARTAN. [Suspect]
     Active Substance: VALSARTAN
     Indication: HYPERTENSION
     Dosage: 80 MG, QD
     Route: 065
     Dates: start: 20160205
  10. METOPROLOL. [Suspect]
     Active Substance: METOPROLOL
     Dosage: 285 MG, QD (6 TABLETS) (23.75 MG WAS ADDED GRADUALLY)
     Route: 065

REACTIONS (3)
  - Ischaemic cardiomyopathy [Unknown]
  - Cardiac failure chronic [Recovered/Resolved]
  - Arteriosclerosis [Unknown]
